FAERS Safety Report 5063901-X (Version None)
Quarter: 2006Q3

REPORT INFORMATION
  Report Type: 
  Country: None (occurrence: None)
  Receive Date: 20060724
  Receipt Date: 20060717
  Transmission Date: 20061208
  Serious: Yes (Disabling, Other)
  Sender: FDA-Public Use
  Company Number: 2006045072

PATIENT
  Age: 55 Year
  Sex: Female
  Weight: 122.4712 kg

DRUGS (4)
  1. NORVASC [Suspect]
     Indication: HYPERTENSION
     Dosage: 5 MG (5 MG, 1 IN 24 HR), ORAL
     Route: 048
  2. ZYRTEC [Suspect]
     Indication: HYPERSENSITIVITY
     Dosage: ORAL
     Route: 048
  3. WELLBUTRIN [Concomitant]
  4. PREVACID [Concomitant]

REACTIONS (7)
  - BACK DISORDER [None]
  - CALCINOSIS [None]
  - DYSSTASIA [None]
  - GAIT DISTURBANCE [None]
  - HYPOAESTHESIA [None]
  - IMPAIRED WORK ABILITY [None]
  - SLEEP APNOEA SYNDROME [None]
